FAERS Safety Report 5787283-0 (Version None)
Quarter: 2008Q2

REPORT INFORMATION
  Report Type: 
  Country: None (occurrence: None)
  Receive Date: 20080625
  Receipt Date: 20070913
  Transmission Date: 20081010
  Serious: No
  Sender: FDA-Public Use
  Company Number: US-ASTRAZENECA-2007UW21621

PATIENT
  Age: 33 Year
  Sex: Female
  Weight: 90.7 kg

DRUGS (3)
  1. PULMICORT FLEXHALER [Suspect]
     Indication: ASTHMA
     Route: 055
  2. PULMICORT FLEXHALER [Suspect]
     Route: 055
  3. PREVACID [Concomitant]

REACTIONS (3)
  - DYSGEUSIA [None]
  - FOREIGN BODY TRAUMA [None]
  - GLOSSITIS [None]
